FAERS Safety Report 9437965 (Version 1)
Quarter: 2013Q3

REPORT INFORMATION
  Report Type: Spontaneous
  Country: US (occurrence: US)
  Receive Date: 20130802
  Receipt Date: 20130802
  Transmission Date: 20140515
  Serious: No
  Sender: FDA-Public Use
  Company Number: US-BRISTOL-MYERS SQUIBB COMPANY-18798090

PATIENT
  Age: 75 Year
  Sex: Male
  Weight: 73.92 kg

DRUGS (13)
  1. COUMADIN TABS 2.5 MG [Suspect]
     Indication: AORTIC VALVE REPLACEMENT
     Dosage: 1DF:COUMADIN 2.5MG PILL: 1+HALF PILLS ON SU,TU,TH,SA : ONE PILL ON MO,WE,FRIDAY.
  2. NORVASC [Concomitant]
  3. METFORMIN [Concomitant]
  4. ASPIRIN [Concomitant]
  5. AVAPRO [Concomitant]
  6. CRESTOR [Concomitant]
  7. CLONIDINE [Concomitant]
  8. SPIRONOLACTONE [Concomitant]
  9. MULTIVITAMIN [Concomitant]
  10. VITAMIN C [Concomitant]
  11. COD LIVER OIL [Concomitant]
  12. COLACE [Concomitant]
  13. COENZYME-Q10 [Concomitant]

REACTIONS (2)
  - International normalised ratio decreased [Unknown]
  - Drug ineffective [Unknown]
